FAERS Safety Report 18414699 (Version 5)
Quarter: 2021Q1

REPORT INFORMATION
  Report Type: Spontaneous
  Country: CA (occurrence: CA)
  Receive Date: 20201022
  Receipt Date: 20210127
  Transmission Date: 20210419
  Serious: Yes (Death, Hospitalization, Other)
  Sender: FDA-Public Use
  Company Number: CA-PFIZER INC-2020406936

PATIENT
  Age: 76 Year
  Sex: Male

DRUGS (11)
  1. HYDROMORPHONE [Concomitant]
     Active Substance: HYDROMORPHONE
     Indication: PAIN
     Dosage: UNK, AS NEEDED
  2. PROCHLORPERAZINE. [Concomitant]
     Active Substance: PROCHLORPERAZINE
     Indication: NAUSEA
     Dosage: 10 UNK, Q4H AS NEEDED
  3. METONIA [Concomitant]
     Active Substance: METOCLOPRAMIDE
     Dosage: 5 MG, AS NEEDED (Q4HRS)
  4. ONDANSETRON [Concomitant]
     Active Substance: ONDANSETRON
     Dosage: 4 MG, 3X/DAY
  5. CYTARABINE. [Concomitant]
     Active Substance: CYTARABINE
     Dosage: LOW DOSE
     Dates: start: 20200915
  6. CYTARABINE. [Concomitant]
     Active Substance: CYTARABINE
     Dosage: UNK
     Dates: end: 20201126
  7. DAURISMO [Suspect]
     Active Substance: GLASDEGIB
     Indication: ACUTE MYELOID LEUKAEMIA
     Dosage: 100 MG, DAILY
     Route: 048
     Dates: start: 20201014, end: 20201126
  8. CRESTOR [Concomitant]
     Active Substance: ROSUVASTATIN CALCIUM
     Dosage: 10 MG, DAILY
  9. CYTARABINE. [Concomitant]
     Active Substance: CYTARABINE
     Indication: ACUTE MYELOID LEUKAEMIA
     Dosage: 10 DAYS ONCE A MONTH (2 INJECTABLE A DAY)?LOW DOSE?FINISHED 25SEP2020 LAST ROUND, 2ND: 14OCT2020
  10. CHLORHEXIDINE [Concomitant]
     Active Substance: CHLORHEXIDINE
     Dosage: UP TO 4 TIMES A DAY
  11. TYLENOL [Concomitant]
     Active Substance: ACETAMINOPHEN
     Dosage: UNK, AS NEEDED

REACTIONS (13)
  - Dizziness [Recovered/Resolved]
  - Nausea [Unknown]
  - Pneumonitis [Unknown]
  - Asthenia [Unknown]
  - Lack of spontaneous speech [Unknown]
  - Taste disorder [Unknown]
  - Neoplasm progression [Fatal]
  - Gait disturbance [Unknown]
  - Illness [Unknown]
  - Presyncope [Recovered/Resolved]
  - Parosmia [Unknown]
  - Seizure [Unknown]
  - Weight decreased [Unknown]

NARRATIVE: CASE EVENT DATE: 20201017
